FAERS Safety Report 4970715-5 (Version None)
Quarter: 2006Q2

REPORT INFORMATION
  Report Type: 
  Country: None (occurrence: None)
  Receive Date: 20060411
  Receipt Date: 20060411
  Transmission Date: 20061013
  Serious: Yes (Life-Threatening, Hospitalization)
  Sender: FDA-Public Use
  Company Number: None

PATIENT
  Age: 59 Year
  Sex: Male
  Weight: 79.4 kg

DRUGS (4)
  1. LINEZOLID [Suspect]
     Indication: ENTEROCOCCAL INFECTION
     Dosage: 1200 MG , 600 MG Q12H, INTRAVEN
     Route: 042
     Dates: start: 20060302, end: 20060310
  2. SULFAMETHOXAZOLE/TRIMETHOPRIM DS [Concomitant]
  3. HEPARIN [Concomitant]
  4. CIPROFLOXACIN HCL [Concomitant]

REACTIONS (1)
  - THROMBOCYTOPENIA [None]
